FAERS Safety Report 9935238 (Version 1)
Quarter: 2014Q1

REPORT INFORMATION
  Report Type: Spontaneous
  Country: IL (occurrence: IL)
  Receive Date: 20140228
  Receipt Date: 20140228
  Transmission Date: 20141002
  Serious: Yes (Life-Threatening)
  Sender: FDA-Public Use
  Company Number: IL-B.I. PHARMACEUTICALS,INC./RIDGEFIELD-2014-BI-08428RI

PATIENT
  Age: 56 Year
  Sex: Female

DRUGS (2)
  1. PRADAXA [Suspect]
     Indication: MITRAL VALVE REPAIR
     Route: 065
     Dates: start: 201311, end: 20140220
  2. PRADAXA [Suspect]
     Indication: COAGULOPATHY

REACTIONS (2)
  - Mitral valve incompetence [Not Recovered/Not Resolved]
  - Atrial thrombosis [Not Recovered/Not Resolved]
